FAERS Safety Report 8194648-9 (Version None)
Quarter: 2012Q1

REPORT INFORMATION
  Report Type: 
  Country: None (occurrence: None)
  Receive Date: 20120308
  Receipt Date: 20111214
  Transmission Date: 20120608
  Serious: No
  Sender: FDA-Public Use
  Company Number: US-GLAXOSMITHKLINE-A0958118A

PATIENT
  Age: 59 Year
  Sex: Female

DRUGS (1)
  1. NICOTINE POLACRILEX [Suspect]
     Indication: SMOKING CESSATION THERAPY
     Route: 002
     Dates: end: 20111213

REACTIONS (14)
  - ORAL PAIN [None]
  - PAIN [None]
  - INTENTIONAL DRUG MISUSE [None]
  - STOMATITIS [None]
  - ORAL DISCOMFORT [None]
  - ORAL MUCOSAL ERYTHEMA [None]
  - NICOTINE DEPENDENCE [None]
  - OEDEMA MOUTH [None]
  - TONGUE BLISTERING [None]
  - PARAESTHESIA ORAL [None]
  - BURNING SENSATION [None]
  - OROPHARYNGEAL BLISTERING [None]
  - GLOSSODYNIA [None]
  - LIP BLISTER [None]
